FAERS Safety Report 18225621 (Version 2)
Quarter: 2020Q3

REPORT INFORMATION
  Report Type: Report from Study
  Country: PT (occurrence: PT)
  Receive Date: 20200903
  Receipt Date: 20200923
  Transmission Date: 20201103
  Serious: Yes (Other)
  Sender: FDA-Public Use
  Company Number: PT-ORION CORPORATION ORION PHARMA-ENTC2020-0237

PATIENT
  Age: 75 Year
  Sex: Female

DRUGS (2)
  1. ROTIGOTINE [Suspect]
     Active Substance: ROTIGOTINE
     Indication: ON AND OFF PHENOMENON
     Route: 065
  2. STALEVO [Suspect]
     Active Substance: CARBIDOPA\ENTACAPONE\LEVODOPA
     Indication: ON AND OFF PHENOMENON
     Dosage: TOTAL LEVODOPA DAILY DOSE  300 (UNITS UNSPECIFIED)
     Route: 065

REACTIONS (15)
  - Hallucination [Unknown]
  - Pain [Unknown]
  - Delusion [Unknown]
  - Therapeutic response shortened [Unknown]
  - Tremor [Unknown]
  - Balance disorder [Unknown]
  - Anosmia [Unknown]
  - Saliva altered [Unknown]
  - Gait disturbance [Unknown]
  - Bradykinesia [Unknown]
  - Dysphonia [Unknown]
  - Reduced facial expression [Unknown]
  - Dysphagia [Unknown]
  - Dementia [Unknown]
  - Muscle rigidity [Unknown]
